FAERS Safety Report 21348263 (Version 1)
Quarter: 2022Q3

REPORT INFORMATION
  Report Type: Spontaneous
  Country: US (occurrence: US)
  Receive Date: 20220919
  Receipt Date: 20220919
  Transmission Date: 20221027
  Serious: Yes (Other)
  Sender: FDA-Public Use
  Company Number: US-CELLTRION INC.-2022US014870

PATIENT

DRUGS (1)
  1. TRUXIMA [Suspect]
     Active Substance: RITUXIMAB-ABBS
     Indication: Hairy cell leukaemia
     Dosage: 953 MG DAYS 1 AND DAY 15 Q 28 DAYS
     Dates: start: 20220825

REACTIONS (2)
  - Hairy cell leukaemia [Unknown]
  - Off label use [Unknown]
